FAERS Safety Report 5424289-5 (Version None)
Quarter: 2007Q3

REPORT INFORMATION
  Report Type: 
  Country: None (occurrence: None)
  Receive Date: 20070822
  Receipt Date: 20070806
  Transmission Date: 20080115
  Serious: Yes (Hospitalization, Other)
  Sender: FDA-Public Use
  Company Number: SPV1-2007-03334

PATIENT
  Age: 21 Year
  Sex: Male

DRUGS (3)
  1. PENTASA [Suspect]
     Indication: COLITIS ULCERATIVE
     Dosage: 750 MG, 3X/DAY:TID, ORAL, 1000 MG, 1X/DAY:QD, RECTAL
     Route: 048
     Dates: start: 20070426
  2. PENTASA [Suspect]
     Indication: COLITIS ULCERATIVE
     Dosage: 750 MG, 3X/DAY:TID, ORAL, 1000 MG, 1X/DAY:QD, RECTAL
     Route: 048
     Dates: start: 20070426
  3. FERROUS SODIUM CITRATE (FERROUS SODIUM CITRATE) [Concomitant]

REACTIONS (6)
  - DIARRHOEA [None]
  - HAEMODIALYSIS [None]
  - NEPHRITIS INTERSTITIAL [None]
  - RECTAL HAEMORRHAGE [None]
  - RENAL FAILURE ACUTE [None]
  - RENAL TUBULAR NECROSIS [None]
